FAERS Safety Report 7610280-7 (Version None)
Quarter: 2011Q3

REPORT INFORMATION
  Report Type: 
  Country: None (occurrence: None)
  Receive Date: 20110715
  Receipt Date: 20110705
  Transmission Date: 20111222
  Serious: Yes (Other)
  Sender: FDA-Public Use
  Company Number: US-SHIRE-ALL1-2011-02132

PATIENT
  Sex: Male
  Weight: 40.816 kg

DRUGS (3)
  1. VYVANSE [Suspect]
     Indication: ATTENTION DEFICIT/HYPERACTIVITY DISORDER
     Dosage: UNK, UNKNOWN
     Route: 048
  2. CLONIDINE [Suspect]
     Indication: PRODUCT USED FOR UNKNOWN INDICATION
     Dosage: UNK, UNKNOWN
     Route: 065
  3. COPPERTONE KIDS CONTINUOUS SPRAY SPF 50 [Suspect]
     Indication: TANNING
     Dosage: UNK, UNKNOWN
     Route: 061
     Dates: start: 20110604, end: 20110606

REACTIONS (7)
  - RASH [None]
  - PHARYNGEAL OEDEMA [None]
  - LIP SWELLING [None]
  - AURICULAR SWELLING [None]
  - SWELLING FACE [None]
  - SKIN REACTION [None]
  - PRURITUS [None]
